FAERS Safety Report 14205746 (Version 4)
Quarter: 2018Q1

REPORT INFORMATION
  Report Type: Report from Study
  Country: MX (occurrence: MX)
  Receive Date: 20171120
  Receipt Date: 20180316
  Transmission Date: 20180508
  Serious: Yes (Hospitalization)
  Sender: FDA-Public Use
  Company Number: MX-UCBSA-2017045943

PATIENT
  Age: 11 Year
  Sex: Female
  Weight: 52 kg

DRUGS (5)
  1. LACOSAMIDE. [Suspect]
     Active Substance: LACOSAMIDE
     Dosage: 2 AND HALF TABLETS EACH, 2X/DAY (BID); STRENGTH: 100 MG
     Route: 048
  2. LACOSAMIDE. [Suspect]
     Active Substance: LACOSAMIDE
     Dosage: DOSE INCREASED
     Route: 048
  3. LACOSAMIDE. [Suspect]
     Active Substance: LACOSAMIDE
     Dosage: 3 TABLETS, 2X/DAY (BID); STRENGTH: 100 MG
     Route: 048
     Dates: start: 2015
  4. LACOSAMIDE. [Suspect]
     Active Substance: LACOSAMIDE
     Indication: EPILEPSY
     Dosage: 1 AND HALF TABLETS EACH, 2X/DAY (BID); STRENGTH: 100 MG
     Route: 048
     Dates: start: 2012
  5. VALPROIC ACID. [Concomitant]
     Active Substance: VALPROIC ACID
     Indication: PRODUCT USED FOR UNKNOWN INDICATION
     Dosage: UNK
     Dates: start: 2014

REACTIONS (4)
  - Drug withdrawal convulsions [Recovered/Resolved]
  - Drug dose omission [Unknown]
  - Off label use [Unknown]
  - Overdose [Unknown]

NARRATIVE: CASE EVENT DATE: 2012
